FAERS Safety Report 10680750 (Version 2)
Quarter: 2014Q4

REPORT INFORMATION
  Report Type: Spontaneous
  Country: US (occurrence: US)
  Receive Date: 20141229
  Receipt Date: 20141229
  Transmission Date: 20150529
  Serious: Yes (Hospitalization, Other)
  Sender: FDA-Public Use
  Company Number: US-SANOFI-AVENTIS-2012SA028662

PATIENT
  Age: 88 Year
  Sex: Female
  Weight: 56.24 kg

DRUGS (26)
  1. AMLODIPINE [Concomitant]
     Active Substance: AMLODIPINE BESYLATE
  2. NSAID^S [Concomitant]
     Active Substance: UNSPECIFIED INGREDIENT
  3. PENICILLIN NOS [Concomitant]
     Active Substance: PENICILLIN
  4. LIDODERM [Concomitant]
     Active Substance: LIDOCAINE
     Dosage: 5% PATCH
  5. PLAVIX [Suspect]
     Active Substance: CLOPIDOGREL BISULFATE
     Indication: CORONARY ARTERY DISEASE
     Route: 048
     Dates: start: 20091109, end: 20100831
  6. METOPROLOL [Concomitant]
     Active Substance: METOPROLOL
  7. RANITIDINE [Concomitant]
     Active Substance: RANITIDINE\RANITIDINE HYDROCHLORIDE
  8. METHYLDOPA. [Concomitant]
     Active Substance: METHYLDOPA
  9. HYDROCODONE [Concomitant]
     Active Substance: HYDROCODONE
  10. MELOXICAM. [Concomitant]
     Active Substance: MELOXICAM
  11. WARFARIN [Concomitant]
     Active Substance: WARFARIN
     Dates: start: 2006, end: 2007
  12. SIMVASTATIN. [Concomitant]
     Active Substance: SIMVASTATIN
  13. ALLOPURINOL. [Concomitant]
     Active Substance: ALLOPURINOL
  14. PLAVIX [Suspect]
     Active Substance: CLOPIDOGREL BISULFATE
     Indication: ARTERIAL OCCLUSIVE DISEASE
     Route: 048
     Dates: start: 20091109, end: 20100831
  15. PLAVIX [Suspect]
     Active Substance: CLOPIDOGREL BISULFATE
     Indication: HYPERTENSION
     Route: 048
     Dates: start: 20091109, end: 20100831
  16. ASPIRIN. [Concomitant]
     Active Substance: ASPIRIN
  17. FOSAMAX [Concomitant]
     Active Substance: ALENDRONATE SODIUM
  18. LORAZEPAM. [Concomitant]
     Active Substance: LORAZEPAM
  19. AZITHROMYCIN [Concomitant]
     Active Substance: AZITHROMYCIN ANHYDROUS
  20. HYDROCHLOROTHIAZIDE. [Concomitant]
     Active Substance: HYDROCHLOROTHIAZIDE
  21. ACETAMINOPHEN. [Concomitant]
     Active Substance: ACETAMINOPHEN
  22. CIPROFLOXACIN. [Concomitant]
     Active Substance: CIPROFLOXACIN
  23. TRIMETHOPRIM/SULFAMETHOXAZOLE [Concomitant]
  24. DORZOLAMIDE [Concomitant]
     Active Substance: DORZOLAMIDE
     Indication: GLAUCOMA
  25. LISINOPRIL. [Concomitant]
     Active Substance: LISINOPRIL
  26. AMOXICILLIN. [Concomitant]
     Active Substance: AMOXICILLIN

REACTIONS (5)
  - Ill-defined disorder [Unknown]
  - Gastrointestinal haemorrhage [Unknown]
  - Gastritis [Unknown]
  - Rectal haemorrhage [Unknown]
  - Anaemia [Unknown]

NARRATIVE: CASE EVENT DATE: 20100210
